FAERS Safety Report 6688622-9 (Version None)
Quarter: 2010Q2

REPORT INFORMATION
  Report Type: 
  Country: None (occurrence: None)
  Receive Date: 20100420
  Receipt Date: 20100405
  Transmission Date: 20101027
  Serious: Yes (Other)
  Sender: FDA-Public Use
  Company Number: PH-PFIZER INC-2010043578

PATIENT
  Sex: Male

DRUGS (1)
  1. TERRAMYCIN V CAP [Suspect]
     Indication: EYE PAIN
     Dosage: 4-6 X A DAY
     Route: 061

REACTIONS (4)
  - EYE DISCHARGE [None]
  - EYE DISORDER [None]
  - OCULAR DISCOMFORT [None]
  - VISION BLURRED [None]
